FAERS Safety Report 9697469 (Version 1)
Quarter: 2013Q4

REPORT INFORMATION
  Report Type: Spontaneous
  Country: US (occurrence: None)
  Receive Date: 20131119
  Receipt Date: 20131119
  Transmission Date: 20140711
  Serious: No
  Sender: FDA-Public Use
  Company Number: None

PATIENT
  Age: 63 None
  Sex: Female

DRUGS (8)
  1. METHOCARBAMOL [Suspect]
     Dosage: 1 TABLET EVERY 8 HRS 3X DAILY BY MOUTH
     Route: 048
     Dates: start: 201307, end: 20131029
  2. SYMBICORT INHALER [Concomitant]
  3. ALBUTEROL INHALER [Concomitant]
  4. AMITRIPTYLINE [Concomitant]
  5. SENOKOT [Concomitant]
  6. CELEBREX [Concomitant]
  7. PENTAZOCINE/APAP [Concomitant]
  8. NEO-SYNEPHRINE SINUS SPRAY [Concomitant]

REACTIONS (2)
  - Abdominal distension [None]
  - Dyspnoea [None]
